FAERS Safety Report 20005951 (Version 1)
Quarter: 2021Q4

REPORT INFORMATION
  Report Type: Spontaneous
  Country: US (occurrence: US)
  Receive Date: 20211027
  Receipt Date: 20211027
  Transmission Date: 20220303
  Serious: Yes (Hospitalization)
  Sender: FDA-Public Use
  Company Number: None

PATIENT
  Age: 72 Year
  Sex: Male
  Weight: 90.26 kg

DRUGS (2)
  1. IMDEVIMAB [Suspect]
     Active Substance: IMDEVIMAB
     Indication: COVID-19
     Dosage: ?          OTHER ROUTE:IVPB
     Dates: start: 20211025, end: 20211025
  2. CASIRIVIMAB [Suspect]
     Active Substance: CASIRIVIMAB
     Indication: COVID-19
     Dosage: ?          OTHER ROUTE:IVPB
     Dates: start: 20211025, end: 20211025

REACTIONS (7)
  - Chest pain [None]
  - Hypotension [None]
  - Hypoxia [None]
  - Rash erythematous [None]
  - Hyperhidrosis [None]
  - Cold sweat [None]
  - Dyspnoea [None]

NARRATIVE: CASE EVENT DATE: 20211025
